FAERS Safety Report 19151490 (Version 2)
Quarter: 2023Q2

REPORT INFORMATION
  Report Type: Spontaneous
  Country: US (occurrence: US)
  Receive Date: 20210419
  Receipt Date: 20230515
  Transmission Date: 20230722
  Serious: No
  Sender: FDA-Public Use
  Company Number: US-UCBSA-2021006048

PATIENT
  Sex: Female

DRUGS (1)
  1. NEUPRO [Suspect]
     Active Substance: ROTIGOTINE
     Indication: Parkinson^s disease
     Dosage: 6 MILLIGRAM, UNK

REACTIONS (5)
  - Insomnia [Unknown]
  - Visual impairment [Unknown]
  - Application site reaction [Unknown]
  - Drug tolerance [Unknown]
  - Drug ineffective [Unknown]
